FAERS Safety Report 20666963 (Version 1)
Quarter: 2022Q2

REPORT INFORMATION
  Report Type: Spontaneous
  Country: JP (occurrence: JP)
  Receive Date: 20220404
  Receipt Date: 20220404
  Transmission Date: 20220721
  Serious: Yes (Hospitalization)
  Sender: FDA-Public Use
  Company Number: JP-NBI-J202205392BIPI

PATIENT
  Age: 8 Decade
  Sex: Male

DRUGS (1)
  1. SPIRIVA RESPIMAT [Suspect]
     Active Substance: TIOTROPIUM BROMIDE
     Indication: Pneumoconiosis
     Route: 055

REACTIONS (4)
  - Compression fracture [Unknown]
  - Benign prostatic hyperplasia [Unknown]
  - Pollakiuria [Unknown]
  - Off label use [Unknown]
